FAERS Safety Report 9040214 (Version 1)
Quarter: 2013Q1

REPORT INFORMATION
  Report Type: Report from Study
  Country: US (occurrence: US)
  Receive Date: 20130129
  Receipt Date: 20130129
  Transmission Date: 20140127
  Serious: No
  Sender: FDA-Public Use
  Company Number: US-ABBOTT-11P-163-0874082-00

PATIENT
  Age: 52 Year
  Sex: Female
  Weight: 45.4 kg

DRUGS (5)
  1. HUMIRA 40 MG/ 0.8 ML PEN [Suspect]
     Indication: CROHN^S DISEASE
     Dates: start: 20111108, end: 20111108
  2. HUMIRA 40 MG/ 0.8 ML PEN [Suspect]
     Route: 050
     Dates: start: 201111
  3. ENTOCORT [Concomitant]
     Indication: CROHN^S DISEASE
     Dates: start: 2011
  4. MULTIVITAMINS [Concomitant]
     Indication: VITAMIN SUPPLEMENTATION
  5. VITAMIN B12 [Concomitant]
     Indication: VITAMIN SUPPLEMENTATION
     Route: 050

REACTIONS (4)
  - Injection site bruising [Not Recovered/Not Resolved]
  - Injection site pain [Not Recovered/Not Resolved]
  - Fatigue [Not Recovered/Not Resolved]
  - Abdominal pain lower [Not Recovered/Not Resolved]
